FAERS Safety Report 16061904 (Version 1)
Quarter: 2019Q1

REPORT INFORMATION
  Report Type: Spontaneous
  Country: PL (occurrence: PL)
  Receive Date: 20190312
  Receipt Date: 20190312
  Transmission Date: 20190418
  Serious: Yes (Death, Hospitalization)
  Sender: FDA-Public Use
  Company Number: PL-TAKEDA-2019TUS012136

PATIENT
  Age: 31 Year
  Sex: Male

DRUGS (1)
  1. VELCADE [Suspect]
     Active Substance: BORTEZOMIB
     Indication: TRANSPLANT REJECTION
     Dosage: 1.25 MILLIGRAM/SQ. METER
     Route: 065

REACTIONS (2)
  - Off label use [Unknown]
  - Cytomegalovirus infection [Fatal]
